FAERS Safety Report 10014864 (Version 1)
Quarter: 2014Q1

REPORT INFORMATION
  Report Type: Report from Study
  Country: US (occurrence: US)
  Receive Date: 20140317
  Receipt Date: 20140317
  Transmission Date: 20141002
  Serious: Yes (Life-Threatening, Hospitalization)
  Sender: FDA-Public Use
  Company Number: US-TEVA-468362USA

PATIENT
  Age: 44 Year
  Sex: Male

DRUGS (22)
  1. ARSENIC TRIOXIDE [Suspect]
     Indication: ACUTE PROMYELOCYTIC LEUKAEMIA
     Route: 042
     Dates: start: 20131024, end: 20131102
  2. ARSENIC TRIOXIDE [Suspect]
     Route: 042
     Dates: start: 20131202
  3. TRETINOIN [Suspect]
     Indication: ACUTE PROMYELOCYTIC LEUKAEMIA
     Dosage: 90 MG/M2 DAILY; 2 WEEKS ON/2 WEEKS OFF
     Route: 048
     Dates: start: 20131024, end: 20131101
  4. TRETINOIN [Suspect]
     Dosage: 90 MG/M2 DAILY; 2 WEEKS ON/2 WEEKS OFF
     Route: 048
     Dates: start: 20131202
  5. GEMTUZUMAB OZOGAMICIN [Suspect]
     Indication: ACUTE PROMYELOCYTIC LEUKAEMIA
     Dosage: 20 MG ONCE
     Route: 042
     Dates: start: 20131031, end: 20131031
  6. CASPOFUNGIN [Concomitant]
  7. HYDROCORTISONE [Concomitant]
  8. IPRATROPIUM [Concomitant]
  9. LEVOSALBUTAMOL [Concomitant]
  10. MEROPENEM [Concomitant]
  11. METOPROLOL TARTRATE [Concomitant]
  12. MOXIFLOXACIN [Concomitant]
  13. GLYCERYL TRINITRATE [Concomitant]
  14. NOREPINEPHRINE [Concomitant]
  15. ADDERALL [Concomitant]
  16. LISINOPRIL [Concomitant]
  17. TEMAZEPAM [Concomitant]
  18. CEFEPIME [Concomitant]
  19. LINEZOLID [Concomitant]
  20. METRONIDAZOLE [Concomitant]
  21. MIDAZOLAM [Concomitant]
  22. PANTOPRAZOLE [Concomitant]

REACTIONS (3)
  - Acute respiratory distress syndrome [Not Recovered/Not Resolved]
  - Tumour lysis syndrome [Not Recovered/Not Resolved]
  - Lung infection [Not Recovered/Not Resolved]
